FAERS Safety Report 9927275 (Version 1)
Quarter: 2014Q1

REPORT INFORMATION
  Report Type: Spontaneous
  Country: US (occurrence: US)
  Receive Date: 20140226
  Receipt Date: 20140226
  Transmission Date: 20141002
  Serious: No
  Sender: FDA-Public Use
  Company Number: US-GILEAD-2014-0095292

PATIENT
  Age: 60 Year
  Sex: Male

DRUGS (1)
  1. RANEXA [Suspect]
     Indication: ANGINA PECTORIS
     Dosage: 500 MG, UNK
     Route: 065
     Dates: start: 20140220

REACTIONS (4)
  - Skin discomfort [Unknown]
  - Oral discomfort [Unknown]
  - Pruritus generalised [Unknown]
  - Oral pruritus [Unknown]
